FAERS Safety Report 25386163 (Version 1)
Quarter: 2025Q2

REPORT INFORMATION
  Report Type: Spontaneous
  Country: US (occurrence: None)
  Receive Date: 20250530
  Receipt Date: 20250530
  Transmission Date: 20250717
  Serious: Yes (Hospitalization)
  Sender: FDA-CTU
  Company Number: None

PATIENT
  Age: 51 Year
  Weight: 83.25 kg

DRUGS (21)
  1. HIZENTRA [Suspect]
     Active Substance: HUMAN IMMUNOGLOBULIN G
     Indication: Blood immunoglobulin G decreased
     Dosage: OTHER FREQUENCY : WEEKLY;?
     Route: 058
  2. Magnesium 500mg PO Qday [Concomitant]
  3. L-lysine 1000mg PO Qday [Concomitant]
  4. Amitriptyline 25mg PO QHS [Concomitant]
  5. Calcium 600mg PO Qday [Concomitant]
  6. Vit D2 50000U Qwk [Concomitant]
  7. Albuterol 2.5mg/3mL nebulizer [Concomitant]
  8. Miralax 17gm [Concomitant]
  9. Clonidine 0.2mg PO [Concomitant]
  10. NALOXONE [Concomitant]
     Active Substance: NALOXONE
  11. Alprazolam 1mg PO Qday [Concomitant]
  12. Pataday opth 0.2% [Concomitant]
  13. Azelastine nasal 0.1% [Concomitant]
  14. Amlodipine 5mg PO Qday [Concomitant]
  15. Atorvastatin 80mg PO Qday [Concomitant]
  16. Cyclobenzaprine 10mg PO [Concomitant]
  17. Sumatriptan 25mg PO [Concomitant]
  18. Nystatin oint 100000U/gm [Concomitant]
  19. Hydrocodone-APAP 10-325mg PO [Concomitant]
  20. HCTZ 25mg PO [Concomitant]
  21. Advair Diskus 100-50 mcg/act inh [Concomitant]

REACTIONS (1)
  - Acute myocardial infarction [None]

NARRATIVE: CASE EVENT DATE: 20250527
